FAERS Safety Report 10008745 (Version 1)
Quarter: 2014Q1

REPORT INFORMATION
  Report Type: Spontaneous
  Country: US (occurrence: US)
  Receive Date: 20140312
  Receipt Date: 20140312
  Transmission Date: 20141002
  Serious: No
  Sender: FDA-Public Use
  Company Number: US-INCYTE CORPORATION-2012IN000541

PATIENT
  Age: 64 Year
  Sex: Female

DRUGS (4)
  1. JAKAFI [Suspect]
     Indication: MYELOFIBROSIS
     Dosage: 20 MG, BID
     Route: 048
     Dates: start: 20120321
  2. FISH OIL [Concomitant]
  3. CALCIUM [Concomitant]
  4. ALLERGY MEDICATION [Concomitant]

REACTIONS (1)
  - Decreased appetite [Not Recovered/Not Resolved]
